FAERS Safety Report 7239859-1 (Version None)
Quarter: 2011Q1

REPORT INFORMATION
  Report Type: 
  Country: None (occurrence: None)
  Receive Date: 20110122
  Receipt Date: 20101206
  Transmission Date: 20110831
  Serious: No
  Sender: FDA-Public Use
  Company Number: US-ALLERGAN-1015798US

PATIENT
  Sex: Female

DRUGS (2)
  1. LATISSE [Suspect]
     Indication: HYPOTRICHOSIS
     Dosage: 1 GTT, QHS
     Route: 061
  2. LATISSE [Suspect]

REACTIONS (4)
  - EYELID OEDEMA [None]
  - EYELID IRRITATION [None]
  - ERYTHEMA OF EYELID [None]
  - SCLERAL HYPERAEMIA [None]
